FAERS Safety Report 22227836 (Version 2)
Quarter: 2023Q2

REPORT INFORMATION
  Report Type: Spontaneous
  Country: CN (occurrence: None)
  Receive Date: 20230419
  Receipt Date: 20230516
  Transmission Date: 20230721
  Serious: Yes (Other)
  Sender: FDA-Public Use
  Company Number: CN-Unichem Pharmaceuticals (USA) Inc-UCM202304-000404

PATIENT
  Age: 57 Year
  Sex: Male

DRUGS (4)
  1. TOPIRAMATE [Suspect]
     Active Substance: TOPIRAMATE
     Indication: Epilepsy
     Route: 048
     Dates: start: 20210506, end: 20210510
  2. DIVALPROEX SODIUM [Suspect]
     Active Substance: DIVALPROEX SODIUM
     Indication: Epilepsy
     Route: 048
  3. HERBALS\DIAMMONIUM GLYCYRRHIZINATE [Concomitant]
     Active Substance: HERBALS\DIAMMONIUM GLYCYRRHIZINATE
     Indication: Liver disorder
     Route: 048
  4. GLUTATHIONE [Concomitant]
     Active Substance: GLUTATHIONE
     Indication: Liver disorder
     Route: 048

REACTIONS (4)
  - Choroidal detachment [Recovered/Resolved]
  - Refraction disorder [Recovered/Resolved]
  - Intraocular pressure decreased [Recovered/Resolved]
  - Drug ineffective [Unknown]
